FAERS Safety Report 7615823-5 (Version None)
Quarter: 2011Q3

REPORT INFORMATION
  Report Type: 
  Country: None (occurrence: None)
  Receive Date: 20110711
  Receipt Date: 20110626
  Transmission Date: 20111222
  Serious: Yes (Other)
  Sender: FDA-Public Use
  Company Number: GB-DEXPHARM-20110901

PATIENT
  Age: 26 Year
  Sex: Female

DRUGS (2)
  1. YASMIN [Concomitant]
  2. OMEPRAZOLE [Suspect]
     Dates: start: 20110609

REACTIONS (5)
  - NAUSEA [None]
  - DIZZINESS [None]
  - ASTHENIA [None]
  - FEELING ABNORMAL [None]
  - MATERNAL EXPOSURE DURING PREGNANCY [None]
